FAERS Safety Report 16326112 (Version 1)
Quarter: 2019Q2

REPORT INFORMATION
  Report Type: Spontaneous
  Country: US (occurrence: US)
  Receive Date: 20190411
  Receipt Date: 20190411
  Transmission Date: 20190711
  Serious: No
  Sender: FDA-Public Use
  Company Number: None

PATIENT
  Age: 45 Year
  Sex: Female
  Weight: 65.77 kg

DRUGS (1)
  1. SUMATRIPTAN 100 MG [Suspect]
     Active Substance: SUMATRIPTAN
     Indication: MIGRAINE
     Route: 048
     Dates: start: 20190409

REACTIONS (7)
  - Dysphagia [None]
  - Sensory disturbance [None]
  - Paraesthesia [None]
  - Suspected product contamination [None]
  - Product taste abnormal [None]
  - Product complaint [None]
  - Product odour abnormal [None]

NARRATIVE: CASE EVENT DATE: 20190404
